FAERS Safety Report 7628794-2 (Version None)
Quarter: 2011Q3

REPORT INFORMATION
  Report Type: 
  Country: None (occurrence: None)
  Receive Date: 20110722
  Receipt Date: 20110720
  Transmission Date: 20111222
  Serious: Yes (Other)
  Sender: FDA-Public Use
  Company Number: US-PFIZER INC-2011164824

PATIENT
  Sex: Male
  Weight: 181 kg

DRUGS (2)
  1. ECSTASY [Concomitant]
  2. VIAGRA [Suspect]
     Dosage: UNK, 2X/DAY
     Route: 048
     Dates: start: 20110101

REACTIONS (3)
  - HAEMATOSPERMIA [None]
  - HAEMATOCHEZIA [None]
  - INTENTIONAL OVERDOSE [None]
